FAERS Safety Report 6285658-7 (Version None)
Quarter: 2009Q3

REPORT INFORMATION
  Report Type: 
  Country: None (occurrence: None)
  Receive Date: 20090727
  Receipt Date: 20090720
  Transmission Date: 20100115
  Serious: Yes (Other)
  Sender: FDA-Public Use
  Company Number: NO-MERCK-0907NOR00002

PATIENT
  Age: 66 Year
  Sex: Female

DRUGS (6)
  1. HYZAAR [Suspect]
     Indication: DIABETES MELLITUS
     Route: 048
     Dates: end: 20090629
  2. METFORMIN [Concomitant]
     Indication: DIABETES MELLITUS
     Route: 048
     Dates: end: 20090628
  3. ATORVASTATIN CALCIUM [Suspect]
     Route: 048
  4. ASPIRIN AND MAGNESIUM OXIDE [Concomitant]
     Route: 048
  5. GABAPENTIN [Suspect]
     Route: 048
  6. AMLODIPINE BESYLATE [Concomitant]
     Route: 048

REACTIONS (2)
  - ANGIOEDEMA [None]
  - DYSPHONIA [None]
